FAERS Safety Report 7575531-6 (Version None)
Quarter: 2011Q2

REPORT INFORMATION
  Report Type: 
  Country: None (occurrence: None)
  Receive Date: 20110627
  Receipt Date: 20110412
  Transmission Date: 20111010
  Serious: Yes (Hospitalization)
  Sender: FDA-Public Use
  Company Number: FR-GENENTECH-320647

PATIENT
  Sex: Male

DRUGS (3)
  1. CYCLOPHOSPHAMIDE [Concomitant]
     Indication: B-CELL SMALL LYMPHOCYTIC LYMPHOMA STAGE II
     Dosage: 1200 MG, QAM
     Route: 002
     Dates: start: 20090825, end: 20090827
  2. FLUDARA [Concomitant]
     Indication: B-CELL SMALL LYMPHOCYTIC LYMPHOMA STAGE II
     Dosage: 180 MG, QAM
     Route: 002
     Dates: start: 20090825, end: 20090827
  3. RITUXIMAB [Suspect]
     Indication: B-CELL SMALL LYMPHOCYTIC LYMPHOMA STAGE II
     Dosage: 800 MG, QAM
     Route: 041
     Dates: start: 20090630, end: 20090824

REACTIONS (1)
  - FEBRILE BONE MARROW APLASIA [None]
